FAERS Safety Report 9450399 (Version 1)
Quarter: 2013Q3

REPORT INFORMATION
  Report Type: Spontaneous
  Country: JP (occurrence: JP)
  Receive Date: 20130809
  Receipt Date: 20130809
  Transmission Date: 20140515
  Serious: No
  Sender: FDA-Public Use
  Company Number: JP-B.I. PHARMACEUTICALS,INC./RIDGEFIELD-2013-BI-23803NB

PATIENT
  Age: 68 Year
  Sex: Female

DRUGS (1)
  1. TRAJENTA [Suspect]
     Route: 065

REACTIONS (2)
  - Urticaria [Unknown]
  - Photosensitivity reaction [Unknown]
